FAERS Safety Report 19045647 (Version 1)
Quarter: 2021Q1

REPORT INFORMATION
  Report Type: Report from Study
  Country: BR (occurrence: BR)
  Receive Date: 20210323
  Receipt Date: 20210323
  Transmission Date: 20210420
  Serious: Yes (Other)
  Sender: FDA-Public Use
  Company Number: BR-TAKEDA-BR202021340

PATIENT
  Sex: Male
  Weight: 90 kg

DRUGS (1)
  1. HEMO?8R [Suspect]
     Active Substance: ANTIHEMOPHILIC FACTOR, HUMAN RECOMBINANT
     Indication: FACTOR VIII DEFICIENCY
     Dosage: 4000 INTERNATIONAL UNIT
     Route: 042

REACTIONS (4)
  - Rhinitis [Unknown]
  - Weight increased [Unknown]
  - Epistaxis [Recovered/Resolved]
  - Testis cancer [Recovered/Resolved]
